FAERS Safety Report 16923060 (Version 1)
Quarter: 2019Q4

REPORT INFORMATION
  Report Type: Spontaneous
  Country: US (occurrence: US)
  Receive Date: 20190822
  Receipt Date: 20190822
  Transmission Date: 20200122
  Serious: Yes (Hospitalization)
  Sender: FDA-Public Use
  Company Number: None

PATIENT
  Age: 64 Year
  Sex: Male

DRUGS (1)
  1. MELOXICAM. [Suspect]
     Active Substance: MELOXICAM
     Indication: GASTROINTESTINAL ULCER HAEMORRHAGE
     Route: 048
     Dates: start: 20170313, end: 20190414

REACTIONS (5)
  - Haemoglobin decreased [None]
  - Melaena [None]
  - Helicobacter infection [None]
  - Gastritis [None]
  - Gastric ulcer [None]

NARRATIVE: CASE EVENT DATE: 20190416
